FAERS Safety Report 16568363 (Version 1)
Quarter: 2019Q3

REPORT INFORMATION
  Report Type: Spontaneous
  Country: None (occurrence: US)
  Receive Date: 20190712
  Receipt Date: 20190712
  Transmission Date: 20191004
  Serious: No
  Sender: FDA-Public Use
  Company Number: US-AMPHASTAR PHARMACEUTICALS, INC.-2070757

PATIENT
  Age: 95 Year
  Sex: Female

DRUGS (6)
  1. AMLODIPINE BESYLATE. [Concomitant]
     Active Substance: AMLODIPINE BESYLATE
  2. LISINOPRIL. [Concomitant]
     Active Substance: LISINOPRIL
  3. GABAPENTIN. [Concomitant]
     Active Substance: GABAPENTIN
  4. ENOXAPARIN SODIUM. [Suspect]
     Active Substance: ENOXAPARIN SODIUM
     Indication: CARDIAC DISORDER
  5. METOPROLOL TARTRATE. [Concomitant]
     Active Substance: METOPROLOL TARTRATE
  6. PRESCRIPTION HEART BURN MEDICATION [Concomitant]

REACTIONS (1)
  - Injection site pain [Recovered/Resolved]

NARRATIVE: CASE EVENT DATE: 20190301
